FAERS Safety Report 9579839 (Version 1)
Quarter: 2013Q4

REPORT INFORMATION
  Report Type: Spontaneous
  Country: IN (occurrence: IN)
  Receive Date: 20131002
  Receipt Date: 20131002
  Transmission Date: 20140711
  Serious: Yes (Other)
  Sender: FDA-Public Use
  Company Number: IN-ROCHE-1283509

PATIENT
  Age: 56 Year
  Sex: Male

DRUGS (3)
  1. RANIBIZUMAB [Suspect]
     Indication: AGE-RELATED MACULAR DEGENERATION
     Route: 050
  2. VANCOMYCIN [Concomitant]
     Dosage: 1/0.1 MG/ML
     Route: 065
  3. CEFTAZIDIME [Concomitant]
     Dosage: 2.25/0.1 MG/ML
     Route: 065

REACTIONS (5)
  - Streptococcal infection [Unknown]
  - Endophthalmitis [Unknown]
  - Vitreous opacities [Unknown]
  - Eccentric fixation [Unknown]
  - Visual acuity reduced [Unknown]
